FAERS Safety Report 18666083 (Version 1)
Quarter: 2020Q4

REPORT INFORMATION
  Report Type: Spontaneous
  Country: GB (occurrence: GB)
  Receive Date: 20201226
  Receipt Date: 20201226
  Transmission Date: 20210114
  Serious: No
  Sender: FDA-Public Use
  Company Number: GB-ALKEM LABORATORIES LIMITED-GB-ALKEM-2019-10906

PATIENT
  Age: 49 Year
  Sex: Male

DRUGS (2)
  1. DEXIMUNE [Suspect]
     Active Substance: CYCLOSPORINE
     Indication: PRODUCT USED FOR UNKNOWN INDICATION
     Dosage: 150MG (100MG + 50MG CAPSULES)
     Route: 048
     Dates: start: 2017
  2. MYCOPHENOLATE MOFETIL. [Suspect]
     Active Substance: MYCOPHENOLATE MOFETIL
     Indication: PRODUCT USED FOR UNKNOWN INDICATION
     Dosage: 1000MG (2 X 500MG TABLETS)
     Route: 048
     Dates: start: 2017

REACTIONS (2)
  - Paternal exposure before pregnancy [Unknown]
  - Exposure via father [Unknown]
